FAERS Safety Report 7634471-4 (Version None)
Quarter: 2011Q3

REPORT INFORMATION
  Report Type: 
  Country: None (occurrence: None)
  Receive Date: 20110725
  Receipt Date: 20110720
  Transmission Date: 20111222
  Serious: Yes (Death, Other)
  Sender: FDA-Public Use
  Company Number: PHEH2005US10721

PATIENT
  Sex: Female

DRUGS (29)
  1. FLURAZEPAM [Concomitant]
     Dosage: 15 MG, QHS
     Route: 048
  2. LACTULOSE [Concomitant]
  3. COLACE [Concomitant]
  4. BACTRIM [Concomitant]
     Dosage: 2 DAYS PER WEEK
     Dates: start: 20030228
  5. ELAVIL [Concomitant]
     Dosage: UNK
  6. METHADON AMIDONE HCL TAB [Concomitant]
     Dosage: 10 MG, BID
     Route: 048
  7. MELPHALAN HYDROCHLORIDE [Concomitant]
     Indication: MULTIPLE MYELOMA
  8. THALIDOMIDE [Concomitant]
     Indication: MULTIPLE MYELOMA
  9. CYMBALTA [Concomitant]
  10. KLONOPIN [Concomitant]
  11. DECADRON [Suspect]
     Indication: MULTIPLE MYELOMA
     Dates: start: 20021121, end: 20030814
  12. PAXIL [Concomitant]
     Indication: DEPRESSION
     Dosage: 10 MG, DAILY
  13. EFFEXOR [Concomitant]
     Dosage: UNK
  14. AMITRIPTYLINE HCL [Concomitant]
     Dosage: UNK
  15. DILAUDID [Concomitant]
  16. PREDNISONE TAB [Concomitant]
  17. BEXTRA [Concomitant]
     Dosage: 20 MG, QD
     Dates: start: 20030228
  18. ERTAPENEM [Concomitant]
     Dosage: INTRAVENOUS
     Dates: start: 20030101, end: 20030101
  19. COUMADIN [Concomitant]
  20. AREDIA [Suspect]
     Indication: MULTIPLE MYELOMA
     Dosage: 90 MG, UNK
     Route: 042
     Dates: start: 20010105, end: 20030908
  21. XANAX [Concomitant]
     Indication: INSOMNIA
     Dosage: 0.5 MG, QHS
     Route: 048
     Dates: start: 20010326
  22. MEPERGAN FORTIS [Concomitant]
  23. GLYBURIDE [Concomitant]
     Dosage: 5 MG, QD
     Route: 048
  24. CLINORIL [Concomitant]
     Dosage: 150 MG, BID
     Route: 048
  25. MAGNESIUM OXIDE [Concomitant]
  26. BACTRIM DS [Concomitant]
  27. PEPCID [Concomitant]
  28. FAMVIR /UNK/ [Concomitant]
     Dosage: 500 MG, Q8H
     Route: 048
  29. KETOCONAZOLE [Concomitant]

REACTIONS (73)
  - ENDOCARDITIS [None]
  - OSTEONECROSIS OF JAW [None]
  - BONE DISORDER [None]
  - OSTEOMYELITIS [None]
  - WEIGHT DECREASED [None]
  - OSTEOSCLEROSIS [None]
  - MEAN CELL VOLUME INCREASED [None]
  - VISION BLURRED [None]
  - URINARY TRACT INFECTION [None]
  - DYSPHONIA [None]
  - DERMATITIS CONTACT [None]
  - FIBROSIS [None]
  - KLEBSIELLA INFECTION [None]
  - RIB FRACTURE [None]
  - RASH [None]
  - HAEMOGLOBIN DECREASED [None]
  - RED CELL DISTRIBUTION WIDTH INCREASED [None]
  - CHEST PAIN [None]
  - CARDIOMEGALY [None]
  - HYPONATRAEMIA [None]
  - ORAL PAIN [None]
  - EATING DISORDER [None]
  - ULCERATIVE KERATITIS [None]
  - LEUKOPENIA [None]
  - HAEMATOCRIT DECREASED [None]
  - SWELLING FACE [None]
  - EYE SWELLING [None]
  - OEDEMA PERIPHERAL [None]
  - ALOPECIA [None]
  - COUGH [None]
  - MALAISE [None]
  - DECREASED APPETITE [None]
  - ASTHENIA [None]
  - HERPES ZOSTER [None]
  - DYSPHAGIA [None]
  - PANIC DISORDER [None]
  - ACTINOMYCOSIS [None]
  - INFLAMMATION [None]
  - MEAN CELL HAEMOGLOBIN [None]
  - ERYTHEMA [None]
  - HEADACHE [None]
  - ATELECTASIS [None]
  - SYNCOPE [None]
  - TOOTH FRACTURE [None]
  - URINARY RETENTION [None]
  - AGITATION [None]
  - STOMATITIS [None]
  - CONFUSIONAL STATE [None]
  - INSOMNIA [None]
  - DENTAL CARIES [None]
  - PAIN [None]
  - NORMOCHROMIC NORMOCYTIC ANAEMIA [None]
  - CLOSTRIDIAL INFECTION [None]
  - FATIGUE [None]
  - OSTEITIS [None]
  - PURULENT DISCHARGE [None]
  - RED BLOOD CELL COUNT DECREASED [None]
  - CREATININE RENAL CLEARANCE DECREASED [None]
  - NEURITIS [None]
  - DEATH [None]
  - NEOPLASM MALIGNANT [None]
  - BONE LESION [None]
  - CATARACT [None]
  - DEMENTIA [None]
  - POST HERPETIC NEURALGIA [None]
  - BLOOD LACTATE DEHYDROGENASE INCREASED [None]
  - BLOODY DISCHARGE [None]
  - BACK PAIN [None]
  - MOUTH ULCERATION [None]
  - BLOOD GLUCOSE INCREASED [None]
  - DIZZINESS [None]
  - SINUS ARRHYTHMIA [None]
  - HYPOAESTHESIA [None]
